FAERS Safety Report 5616092-8 (Version None)
Quarter: 2008Q1

REPORT INFORMATION
  Report Type: 
  Country: None (occurrence: None)
  Receive Date: 20080206
  Receipt Date: 20080130
  Transmission Date: 20080703
  Serious: Yes (Disabling, Other)
  Sender: FDA-Public Use
  Company Number: CA-PFIZER INC-2008005434

PATIENT
  Sex: Female
  Weight: 68 kg

DRUGS (8)
  1. LIPITOR [Suspect]
     Indication: TYPE IIA HYPERLIPIDAEMIA
     Route: 048
  2. LIPITOR [Suspect]
     Indication: BLOOD CHOLESTEROL INCREASED
  3. DILTIAZEM [Concomitant]
     Dosage: DAILY DOSE:350MG-FREQ:DAILY
     Route: 048
  4. WARFARIN SODIUM [Concomitant]
     Dosage: TEXT:250 MG
     Route: 048
  5. ACCUPRIL [Concomitant]
     Dosage: DAILY DOSE:40MG-FREQ:DAILY
     Route: 048
  6. ASAPHEN [Concomitant]
     Dosage: DAILY DOSE:80MG-FREQ:DAILY
     Route: 048
  7. ATASOL [Concomitant]
     Dosage: DAILY DOSE:15MG-FREQ:EVERY 4 HOURS AS NEEDED
     Route: 048
  8. ATIVAN [Concomitant]
     Dosage: DAILY DOSE:1MG-FREQ:EVERY NIGHT
     Route: 048

REACTIONS (5)
  - ABASIA [None]
  - INJURY [None]
  - MENISCUS LESION [None]
  - MYALGIA [None]
  - SKULL FRACTURE [None]
